FAERS Safety Report 18314153 (Version 1)
Quarter: 2020Q3

REPORT INFORMATION
  Report Type: Spontaneous
  Country: US (occurrence: US)
  Receive Date: 20200925
  Receipt Date: 20200925
  Transmission Date: 20201103
  Serious: Yes (Hospitalization, Other)
  Sender: FDA-Public Use
  Company Number: US-JNJFOC-A-NJ2019-199517

PATIENT
  Age: 68 Year
  Sex: Female
  Weight: 87.53 kg

DRUGS (4)
  1. ADEMPAS [Concomitant]
     Active Substance: RIOCIGUAT
  2. XARELTO [Concomitant]
     Active Substance: RIVAROXABAN
  3. SELEXIPAG [Suspect]
     Active Substance: SELEXIPAG
     Indication: PULMONARY ARTERIAL HYPERTENSION
     Route: 048
  4. OPSUMIT [Suspect]
     Active Substance: MACITENTAN
     Indication: PULMONARY ARTERIAL HYPERTENSION
     Dosage: 10 MG, QD
     Route: 048
     Dates: start: 20180711

REACTIONS (12)
  - Fatigue [Unknown]
  - Gastrointestinal disorder [Unknown]
  - Product dose omission issue [Unknown]
  - Decreased appetite [Unknown]
  - Hospitalisation [Unknown]
  - Gastrointestinal haemorrhage [Unknown]
  - Vomiting [Unknown]
  - Illness [Unknown]
  - Nausea [Unknown]
  - Surgery [Unknown]
  - Constipation [Unknown]
  - Hypotension [Unknown]
